FAERS Safety Report 12125819 (Version 1)
Quarter: 2016Q1

REPORT INFORMATION
  Report Type: Report from Study
  Country: US (occurrence: US)
  Receive Date: 20160229
  Receipt Date: 20160229
  Transmission Date: 20160526
  Serious: No
  Sender: FDA-Public Use
  Company Number: US-ABBVIE-15P-163-1478497-00

PATIENT
  Sex: Male

DRUGS (1)
  1. ANDROGEL [Suspect]
     Active Substance: TESTOSTERONE
     Indication: ANDROGEN REPLACEMENT THERAPY
     Dosage: APPLY TWO PUMPS TO SKIN EVERYDAY
     Route: 061
     Dates: start: 20150810

REACTIONS (2)
  - Drug ineffective [Unknown]
  - Incorrect dose administered [Recovering/Resolving]
